FAERS Safety Report 6521445-X (Version None)
Quarter: 2009Q4

REPORT INFORMATION
  Report Type: 
  Country: None (occurrence: None)
  Receive Date: 20091230
  Receipt Date: 20091221
  Transmission Date: 20100525
  Serious: Yes (Other)
  Sender: FDA-Public Use
  Company Number: US-BAYER-200943543NA

PATIENT
  Age: 32 Year
  Sex: Male

DRUGS (1)
  1. BETASERON [Suspect]
     Indication: MULTIPLE SCLEROSIS
     Dosage: TOTAL DAILY DOSE: 8 MIU
     Route: 058
     Dates: start: 20091105

REACTIONS (4)
  - ADVERSE EVENT [None]
  - DISTURBANCE IN ATTENTION [None]
  - FATIGUE [None]
  - PAIN [None]
